FAERS Safety Report 12909922 (Version 4)
Quarter: 2016Q4

REPORT INFORMATION
  Report Type: Spontaneous
  Country: US (occurrence: US)
  Receive Date: 20161104
  Receipt Date: 20161201
  Transmission Date: 20170207
  Serious: Yes (Other)
  Sender: FDA-Public Use
  Company Number: US-ROCHE-1849475

PATIENT
  Age: 81 Year
  Sex: Female
  Weight: 57.2 kg

DRUGS (2)
  1. DRONABINOL. [Interacting]
     Active Substance: DRONABINOL
     Indication: DECREASED APPETITE
     Dosage: TOOK ONLY 7 DOSES; NO;DAY1-BID; DAY2-7 QD
     Route: 048
     Dates: start: 20161020, end: 20161026
  2. ERIVEDGE [Suspect]
     Active Substance: VISMODEGIB
     Indication: BASAL CELL CARCINOMA
     Route: 048
     Dates: start: 20160805, end: 20161026

REACTIONS (8)
  - Weight decreased [Recovering/Resolving]
  - Drug-induced liver injury [Not Recovered/Not Resolved]
  - Nausea [Recovering/Resolving]
  - Fatigue [Recovering/Resolving]
  - Hepatic enzyme increased [Recovering/Resolving]
  - Drug interaction [Unknown]
  - Blood alkaline phosphatase increased [Recovering/Resolving]
  - Decreased appetite [Recovering/Resolving]

NARRATIVE: CASE EVENT DATE: 20160805
